FAERS Safety Report 5706028-3 (Version None)
Quarter: 2008Q2

REPORT INFORMATION
  Report Type: 
  Country: None (occurrence: None)
  Receive Date: 20080411
  Receipt Date: 20080407
  Transmission Date: 20081010
  Serious: Yes (Hospitalization)
  Sender: FDA-Public Use
  Company Number: JPI-P-003350

PATIENT
  Sex: Female

DRUGS (5)
  1. XYREM [Suspect]
     Indication: NARCOLEPSY
     Dosage: 6 GM (3 GM, 2 IN 1 D, ORAL; 3 GM (3 GM, 1 IN 1 D), ORAL; 6 GM (3 GM, 2 IN 1 D), ORAL
     Route: 048
     Dates: end: 20080403
  2. XYREM [Suspect]
     Indication: NARCOLEPSY
     Dosage: 6 GM (3 GM, 2 IN 1 D, ORAL; 3 GM (3 GM, 1 IN 1 D), ORAL; 6 GM (3 GM, 2 IN 1 D), ORAL
     Route: 048
     Dates: start: 20080405, end: 20080405
  3. XYREM [Suspect]
     Indication: NARCOLEPSY
     Dosage: 6 GM (3 GM, 2 IN 1 D, ORAL; 3 GM (3 GM, 1 IN 1 D), ORAL; 6 GM (3 GM, 2 IN 1 D), ORAL
     Route: 048
     Dates: start: 20080406
  4. DEXTROAMPETAMINE SULFATE TAB [Concomitant]
  5. FLUOXETINE [Concomitant]

REACTIONS (3)
  - CONVULSION [None]
  - INCORRECT DOSE ADMINISTERED [None]
  - MENTAL STATUS CHANGES [None]
